FAERS Safety Report 9016623 (Version 6)
Quarter: 2013Q3

REPORT INFORMATION
  Report Type: Spontaneous
  Country: US (occurrence: US)
  Receive Date: 20130117
  Receipt Date: 20130830
  Transmission Date: 20140515
  Serious: Yes (Other)
  Sender: FDA-Public Use
  Company Number: US-BIOGENIDEC-2013BI004066

PATIENT
  Age: 60 Year
  Sex: Female

DRUGS (4)
  1. TYSABRI [Suspect]
     Indication: MULTIPLE SCLEROSIS
     Route: 042
     Dates: start: 20121205
  2. SYNTHROID [Concomitant]
     Indication: HYPOTHYROIDISM
  3. LEXAPRO [Concomitant]
  4. VERAPAMIL [Concomitant]

REACTIONS (3)
  - Complex partial seizures [Recovered/Resolved]
  - Multiple sclerosis relapse [Not Recovered/Not Resolved]
  - Convulsion [Recovered/Resolved]
